FAERS Safety Report 6493606-X (Version None)
Quarter: 2009Q4

REPORT INFORMATION
  Report Type: 
  Country: None (occurrence: None)
  Receive Date: 20091214
  Receipt Date: 20091210
  Transmission Date: 20100525
  Serious: Yes (Other)
  Sender: FDA-Public Use
  Company Number: A0834474A

PATIENT
  Sex: Female

DRUGS (2)
  1. LAMICTAL [Suspect]
     Indication: COMPLEX PARTIAL SEIZURES
     Dosage: 150MG TWICE PER DAY
     Route: 065
  2. TRILEPTAL [Concomitant]
     Indication: COMPLEX PARTIAL SEIZURES
     Route: 065

REACTIONS (1)
  - MICROCYTIC ANAEMIA [None]
